FAERS Safety Report 7690258-8 (Version None)
Quarter: 2011Q3

REPORT INFORMATION
  Report Type: 
  Country: None (occurrence: None)
  Receive Date: 20110817
  Receipt Date: 20110817
  Transmission Date: 20111222
  Serious: No
  Sender: FDA-Public Use
  Company Number: None

PATIENT

DRUGS (1)
  1. GEODON [Suspect]

REACTIONS (5)
  - TARDIVE DYSKINESIA [None]
  - RENAL DISORDER [None]
  - FEELING ABNORMAL [None]
  - MINOR COGNITIVE MOTOR DISORDER [None]
  - GAIT DISTURBANCE [None]
